FAERS Safety Report 7715912-0 (Version None)
Quarter: 2011Q3

REPORT INFORMATION
  Report Type: 
  Country: None (occurrence: None)
  Receive Date: 20110823
  Receipt Date: 20110810
  Transmission Date: 20111222
  Serious: Yes (Other)
  Sender: FDA-Public Use
  Company Number: GER/UKI/11/0020681

PATIENT
  Age: 76 Year
  Sex: Male

DRUGS (3)
  1. FINASTERIDE [Suspect]
     Dosage: 5 MG, ORAL
     Route: 048
  2. BETA BLOCKER (BETA BLOCKING AGENTS) [Suspect]
  3. FLECAINIDE ACETATE [Suspect]

REACTIONS (2)
  - DRUG INTERACTION [None]
  - LOSS OF CONSCIOUSNESS [None]
